FAERS Safety Report 5106570-2 (Version None)
Quarter: 2006Q3

REPORT INFORMATION
  Report Type: 
  Country: None (occurrence: None)
  Receive Date: 20060918
  Receipt Date: 20060825
  Transmission Date: 20061208
  Serious: Yes (Other)
  Sender: FDA-Public Use
  Company Number: DE-GLAXOSMITHKLINE-D0050704A

PATIENT
  Age: 34 Year
  Sex: Female

DRUGS (5)
  1. LAMICTAL [Suspect]
     Indication: BORDERLINE PERSONALITY DISORDER
     Dosage: 100MG TWICE PER DAY
     Route: 048
     Dates: start: 20060501, end: 20060830
  2. SEROQUEL [Concomitant]
     Route: 065
  3. ZOLOFT [Concomitant]
     Route: 065
  4. TEGRETOL [Concomitant]
     Route: 065
  5. STANGYL [Concomitant]
     Route: 065

REACTIONS (7)
  - ARTHRALGIA [None]
  - FALSE POSITIVE LABORATORY RESULT [None]
  - HEPATIC ENZYME INCREASED [None]
  - HYPERSENSITIVITY [None]
  - LYMPHADENOPATHY [None]
  - PYREXIA [None]
  - SKIN NODULE [None]
